FAERS Safety Report 9147762 (Version 1)
Quarter: 2013Q1

REPORT INFORMATION
  Report Type: Spontaneous
  Country: US (occurrence: US)
  Receive Date: 20130307
  Receipt Date: 20130307
  Transmission Date: 20140127
  Serious: No
  Sender: FDA-Public Use
  Company Number: US-009507513-1303USA003141

PATIENT
  Age: 24 Year
  Sex: Female

DRUGS (1)
  1. AFRIN [Suspect]
     Indication: NASAL CONGESTION
     Dosage: UNK, UNKNOWN
     Route: 045

REACTIONS (8)
  - Pain [Unknown]
  - Nausea [Unknown]
  - Dizziness [Unknown]
  - Retching [Unknown]
  - Feeling abnormal [Unknown]
  - Headache [Unknown]
  - Rhinorrhoea [Unknown]
  - Accidental exposure to product [Unknown]
